FAERS Safety Report 6492148-5 (Version None)
Quarter: 2009Q4

REPORT INFORMATION
  Report Type: 
  Country: None (occurrence: None)
  Receive Date: 20091214
  Receipt Date: 20091207
  Transmission Date: 20100525
  Serious: Yes (Other)
  Sender: FDA-Public Use
  Company Number: US-RB-026693-09

PATIENT
  Age: 16 Year
  Sex: Male

DRUGS (3)
  1. MUCINEX DM [Suspect]
     Dosage: TOOK 1 TABLET EVERY 12 HOURS
     Route: 048
     Dates: start: 20091204
  2. TYLENOL (CAPLET) [Concomitant]
     Dosage: DOSED EVERY 4 HOURS
     Dates: start: 20091206
  3. MOTRIN [Concomitant]

REACTIONS (2)
  - BLOOD PRESSURE INCREASED [None]
  - DIZZINESS [None]
